FAERS Safety Report 10285731 (Version 3)
Quarter: 2014Q3

REPORT INFORMATION
  Report Type: Spontaneous
  Country: US (occurrence: US)
  Receive Date: 20140709
  Receipt Date: 20140905
  Transmission Date: 20150326
  Serious: Yes (Hospitalization, Other)
  Sender: FDA-Public Use
  Company Number: US-BEH-2014043625

PATIENT
  Age: 64 Year
  Sex: Female
  Weight: 90 kg

DRUGS (4)
  1. HIZENTRA [Suspect]
     Active Substance: HUMAN IMMUNOGLOBULIN G
     Indication: IMMUNODEFICIENCY COMMON VARIABLE
     Dosage: THERAPY START DATE NOV-2012
     Route: 058
  2. HORMONES AND RELATED AGENTS [Concomitant]
  3. WARFARIN [Suspect]
     Active Substance: WARFARIN
  4. WARFARIN [Concomitant]
     Active Substance: WARFARIN

REACTIONS (6)
  - Myeloproliferative disorder [Recovered/Resolved with Sequelae]
  - Pulmonary mass [Recovered/Resolved with Sequelae]
  - Pulmonary embolism [Recovered/Resolved with Sequelae]
  - Dyspnoea [Recovered/Resolved with Sequelae]
  - Infusion site haemorrhage [Recovered/Resolved with Sequelae]
  - Pulmonary thrombosis [Recovered/Resolved with Sequelae]

NARRATIVE: CASE EVENT DATE: 201312
